FAERS Safety Report 4921578-5 (Version None)
Quarter: 2006Q1

REPORT INFORMATION
  Report Type: 
  Country: None (occurrence: None)
  Receive Date: 20060224
  Receipt Date: 20051019
  Transmission Date: 20060701
  Serious: Yes (Other)
  Sender: FDA-Public Use
  Company Number: 2005PK01929

PATIENT
  Age: 704 Month
  Sex: Female
  Weight: 61 kg

DRUGS (4)
  1. ARIMIDEX [Suspect]
     Indication: BREAST CANCER FEMALE
     Route: 048
     Dates: start: 20010303, end: 20051004
  2. NOLVADEX [Suspect]
     Indication: BREAST CANCER FEMALE
     Route: 048
     Dates: start: 19990302, end: 20010302
  3. FOSAMAX [Concomitant]
     Dates: start: 20030101
  4. CALCIUM GLUCONATE [Concomitant]
     Dates: start: 20020101

REACTIONS (3)
  - JAW DISORDER [None]
  - OSTEOPOROSIS [None]
  - TOOTH DISORDER [None]
